FAERS Safety Report 5356171-6 (Version None)
Quarter: 2007Q2

REPORT INFORMATION
  Report Type: 
  Country: None (occurrence: None)
  Receive Date: 20070612
  Receipt Date: 20070531
  Transmission Date: 20071010
  Serious: Yes (Other)
  Sender: FDA-Public Use
  Company Number: US-PFIZER INC-2007045769

PATIENT
  Sex: Female
  Weight: 63.5 kg

DRUGS (2)
  1. CHANTIX [Suspect]
     Indication: EX-SMOKER
     Dates: start: 20070101, end: 20070101
  2. BENICAR [Concomitant]
     Indication: HYPERTENSION

REACTIONS (7)
  - ABDOMINAL DISTENSION [None]
  - BACTERIAL INFECTION [None]
  - DRUG DOSE OMISSION [None]
  - DRUG INEFFECTIVE [None]
  - DYSPEPSIA [None]
  - GASTROOESOPHAGEAL REFLUX DISEASE [None]
  - SWELLING [None]
